FAERS Safety Report 10055533 (Version 1)
Quarter: 2014Q2

REPORT INFORMATION
  Report Type: Spontaneous
  Country: US (occurrence: US)
  Receive Date: 20140403
  Receipt Date: 20140403
  Transmission Date: 20141212
  Serious: Yes (Disabling, Other)
  Sender: FDA-Public Use
  Company Number: US-DRREDDYS-USA/USA/14/0039314

PATIENT
  Age: 84 Year
  Sex: Female

DRUGS (3)
  1. ZOLEDRONIC ACID INJECTION 4 MG/5 ML [Suspect]
     Indication: OSTEOPOROSIS
     Route: 065
  2. ACETAMINOPHEN [Concomitant]
     Indication: PRODUCT USED FOR UNKNOWN INDICATION
     Route: 065
  3. DIPHENHYDRAMINE [Concomitant]
     Indication: PRODUCT USED FOR UNKNOWN INDICATION
     Route: 065

REACTIONS (2)
  - Temporal arteritis [Recovered/Resolved]
  - Blindness [Not Recovered/Not Resolved]
